FAERS Safety Report 9199196 (Version 2)
Quarter: 2013Q2

REPORT INFORMATION
  Report Type: Spontaneous
  Country: US (occurrence: None)
  Receive Date: 20130325
  Receipt Date: 20130409
  Transmission Date: 20140414
  Serious: No
  Sender: FDA-Public Use
  Company Number: 2013US-004582

PATIENT
  Age: 78 Year
  Sex: Male
  Weight: 90 kg

DRUGS (13)
  1. OMONTYS [Suspect]
     Indication: NEPHROGENIC ANAEMIA
     Dosage: 2 MG, Q 4 WEEKS, INTRAVENOUS
     Dates: start: 20130209, end: 20130209
  2. NORCO (HYDROCODONE BITARTRATE, PARACETAMOL) [Concomitant]
  3. SIMVASTATIN (SIMVASTATIN) [Concomitant]
  4. PHOSLO (CALCIUM ACETATE) [Concomitant]
  5. METOPROLOL (METOPROLOL) [Concomitant]
  6. PANTOPRAZOLE (PANTOPRAZOLE) [Concomitant]
  7. EPOGEN (EPOETIN ALFA) [Concomitant]
  8. HEPARIN (HEPARIN) [Concomitant]
  9. ZEMPLAR (PARICALCITOL) [Concomitant]
  10. VENOFER [Concomitant]
  11. NEPHROCAPS (ASCORBIC ACID, BIOTIN, CYANOCOBALAMIN, FOLIC ACID, NICOTINAMIDE, PANTOTHENIC ACID, PYRIDOXINE HYDROCHLORIDE, RIBOFLAVIN, THIAMINE HYDROCHLORIDE) [Concomitant]
  12. NIFEDIPINE (NIFEDIPINE) (NIFEDIPINE) [Concomitant]
  13. RAPAFLO (SILODOSIN) [Concomitant]

REACTIONS (6)
  - Dysgeusia [None]
  - Nausea [None]
  - Drug hypersensitivity [None]
  - Somnolence [None]
  - Dysgeusia [None]
  - Blood pressure diastolic decreased [None]
